FAERS Safety Report 9818439 (Version 3)
Quarter: 2014Q1

REPORT INFORMATION
  Report Type: Spontaneous
  Country: US (occurrence: US)
  Receive Date: 20140115
  Receipt Date: 20140227
  Transmission Date: 20141002
  Serious: No
  Sender: FDA-Public Use
  Company Number: US-PFIZER INC-2014011854

PATIENT
  Age: 52 Year
  Sex: Male
  Weight: 52.61 kg

DRUGS (3)
  1. LYRICA [Suspect]
     Indication: NEURALGIA
     Dosage: 200 MG, 2X/DAY
  2. LYRICA [Suspect]
     Dosage: 200 MG, 2X/DAY
     Dates: end: 20140106
  3. PRAVASTATIN [Concomitant]
     Indication: BLOOD CHOLESTEROL INCREASED
     Dosage: 80 MG, 1X/DAY

REACTIONS (2)
  - Pain [Not Recovered/Not Resolved]
  - Burning sensation [Unknown]
